FAERS Safety Report 7602765-4 (Version None)
Quarter: 2011Q2

REPORT INFORMATION
  Report Type: 
  Country: None (occurrence: None)
  Receive Date: 20110630
  Receipt Date: 20110622
  Transmission Date: 20111010
  Serious: Yes (Disabling, Other)
  Sender: FDA-Public Use
  Company Number: ACO_25351_2011

PATIENT
  Age: 33 Year
  Sex: Female
  Weight: 136.1 kg

DRUGS (5)
  1. AMPYRA [Suspect]
     Indication: GAIT DISTURBANCE
     Dosage: 10 MG, Q 12 HRS, ORAL
     Route: 048
     Dates: start: 20110614, end: 20110625
  2. RITALIN (METHYLPRHENIDATE HYDROCHLORIDE) [Concomitant]
  3. BETASERON (ALBUMIN HUMAN, GLUCOSE, INTERFENOR BETA) [Concomitant]
  4. WELLBUTRIN (BUPROPIN HYDROCHLORIDE) [Concomitant]
  5. VITAMINS NOS (VITAMINS NOS) [Concomitant]

REACTIONS (3)
  - DEAFNESS UNILATERAL [None]
  - EAR DISCOMFORT [None]
  - SENSATION OF HEAVINESS [None]
